FAERS Safety Report 15043364 (Version 4)
Quarter: 2020Q2

REPORT INFORMATION
  Report Type: Spontaneous
  Country: US (occurrence: US)
  Receive Date: 20180621
  Receipt Date: 20200422
  Transmission Date: 20200713
  Serious: Yes (Other)
  Sender: FDA-Public Use
  Company Number: US-PFIZER INC-2018251027

PATIENT
  Age: 52 Year
  Sex: Female

DRUGS (12)
  1. LINEZOLID. [Suspect]
     Active Substance: LINEZOLID
     Indication: ENTEROBACTER INFECTION
  2. MEROPENEM. [Concomitant]
     Active Substance: MEROPENEM
     Indication: ENTEROCOCCAL INFECTION
     Dosage: 1 G, 3X/DAY(INTRAVENOUS PIGGYBACK)
     Route: 042
  3. LINEZOLID. [Suspect]
     Active Substance: LINEZOLID
     Indication: ENTEROCOCCAL INFECTION
     Dosage: UNK (ORAL LINEZOLID FOR A PLANNED COURSE OF 8 WEEKS)
     Route: 048
  4. LINEZOLID. [Suspect]
     Active Substance: LINEZOLID
     Indication: ENTEROBACTER INFECTION
  5. ERTAPENEM. [Concomitant]
     Active Substance: ERTAPENEM SODIUM
     Indication: ESCHERICHIA INFECTION
  6. LINEZOLID. [Suspect]
     Active Substance: LINEZOLID
     Indication: ESCHERICHIA INFECTION
  7. LINEZOLID. [Suspect]
     Active Substance: LINEZOLID
     Indication: ENTEROCOCCAL INFECTION
     Dosage: 600 MG, 2X/DAY (INTRAVENOUS PIGGYBACK)
     Route: 042
  8. MEROPENEM. [Concomitant]
     Active Substance: MEROPENEM
     Indication: ENTEROBACTER INFECTION
  9. LINEZOLID. [Suspect]
     Active Substance: LINEZOLID
     Indication: ESCHERICHIA INFECTION
  10. ERTAPENEM. [Concomitant]
     Active Substance: ERTAPENEM SODIUM
     Indication: ENTEROCOCCAL INFECTION
     Dosage: 1 G, 2X/DAY (INTRAVENOUS PIGGYBACK)
     Route: 042
  11. ERTAPENEM. [Concomitant]
     Active Substance: ERTAPENEM SODIUM
     Indication: ENTEROBACTER INFECTION
  12. MEROPENEM. [Concomitant]
     Active Substance: MEROPENEM
     Indication: ESCHERICHIA INFECTION

REACTIONS (4)
  - Hypoglycaemia [Recovered/Resolved]
  - Toxicity to various agents [Unknown]
  - Pancreatitis acute [Unknown]
  - Lactic acidosis [Recovered/Resolved]
